FAERS Safety Report 7423656-8 (Version None)
Quarter: 2011Q2

REPORT INFORMATION
  Report Type: 
  Country: None (occurrence: None)
  Receive Date: 20110413
  Receipt Date: 20110413
  Transmission Date: 20111010
  Serious: No
  Sender: FDA-Public Use
  Company Number: None

PATIENT
  Age: 17 Year
  Sex: Female
  Weight: 61.2356 kg

DRUGS (1)
  1. BUPROPRION 150MG XR PO 1 TAB DAILY [Suspect]
     Indication: DEPRESSION
     Dosage: 150MG ER QD PO
     Route: 048
     Dates: start: 20081101, end: 20101101

REACTIONS (1)
  - DRUG INEFFECTIVE [None]
